FAERS Safety Report 11230872 (Version 2)
Quarter: 2015Q3

REPORT INFORMATION
  Report Type: Report from Study
  Country: US (occurrence: US)
  Receive Date: 20150701
  Receipt Date: 20150907
  Transmission Date: 20151125
  Serious: Yes (Hospitalization)
  Sender: FDA-Public Use
  Company Number: US-BIOGENIDEC-2015BI088849

PATIENT
  Age: 54 Year
  Sex: Female

DRUGS (2)
  1. TYSABRI [Suspect]
     Active Substance: NATALIZUMAB
     Indication: MULTIPLE SCLEROSIS
     Route: 042
     Dates: start: 20120502
  2. TYSABRI [Suspect]
     Active Substance: NATALIZUMAB
     Indication: MULTIPLE SCLEROSIS
     Route: 042

REACTIONS (12)
  - Cholecystectomy [Recovered/Resolved]
  - Pancreatitis [Not Recovered/Not Resolved]
  - Pain [Unknown]
  - Device leakage [Unknown]
  - Procedural complication [Not Recovered/Not Resolved]
  - Hepatic enzyme increased [Not Recovered/Not Resolved]
  - Memory impairment [Unknown]
  - Emotional distress [Unknown]
  - Contrast media reaction [Not Recovered/Not Resolved]
  - Cough [Unknown]
  - Phantom pain [Unknown]
  - Crying [Unknown]

NARRATIVE: CASE EVENT DATE: 201505
